FAERS Safety Report 14381654 (Version 1)
Quarter: 2018Q1

REPORT INFORMATION
  Report Type: Spontaneous
  Country: US (occurrence: US)
  Receive Date: 20180105
  Receipt Date: 20180105
  Transmission Date: 20180509
  Serious: Yes (Other)
  Sender: FDA-Public Use
  Company Number: None

PATIENT
  Age: 72 Year
  Sex: Female
  Weight: 81.65 kg

DRUGS (7)
  1. CLARITIN [Concomitant]
     Active Substance: LORATADINE
  2. METHIMAZOLE. [Concomitant]
     Active Substance: METHIMAZOLE
  3. CALCIUM 500+D [Concomitant]
     Active Substance: CALCIUM\VITAMIN D
  4. BIOTIN [Concomitant]
     Active Substance: BIOTIN
  5. VITAMIN D3 [Concomitant]
     Active Substance: CHOLECALCIFEROL
  6. VITAMIN B12 [Concomitant]
     Active Substance: CYANOCOBALAMIN
  7. GADOLINIUM [Suspect]
     Active Substance: GADOLINIUM

REACTIONS (2)
  - Pain in extremity [None]
  - Contrast media reaction [None]

NARRATIVE: CASE EVENT DATE: 20171027
